FAERS Safety Report 4300069-9 (Version None)
Quarter: 2004Q1

REPORT INFORMATION
  Report Type: 
  Country: None (occurrence: None)
  Receive Date: 20040220
  Receipt Date: 20040210
  Transmission Date: 20041129
  Serious: Yes (Hospitalization, Other)
  Sender: FDA-Public Use
  Company Number: US-BRISTOL-MYERS SQUIBB COMPANY-12502480

PATIENT
  Age: 74 Year
  Sex: Female

DRUGS (7)
  1. COUMADIN [Suspect]
     Indication: CARDIAC OPERATION
     Route: 048
  2. COUMADIN [Suspect]
     Indication: AORTIC VALVE REPLACEMENT
     Route: 048
  3. COUMADIN [Suspect]
     Indication: MITRAL VALVE REPLACEMENT
     Route: 048
  4. EPOGEN [Concomitant]
     Dosage: TAKING FOR ONE YEAR.
  5. LASIX [Concomitant]
     Dosage: TAKING FOR YEARS.
  6. POTASSIUM [Concomitant]
  7. BLOOD PRESSURE PILL [Concomitant]

REACTIONS (5)
  - ABDOMINAL PAIN UPPER [None]
  - CARDIAC FAILURE [None]
  - HAEMORRHAGE [None]
  - HEPATOMEGALY [None]
  - INTESTINAL RESECTION [None]
